FAERS Safety Report 10231500 (Version 6)
Quarter: 2015Q2

REPORT INFORMATION
  Report Type: Spontaneous
  Country: US (occurrence: US)
  Receive Date: 20140611
  Receipt Date: 20150417
  Transmission Date: 20150821
  Serious: Yes (Other)
  Sender: FDA-Public Use
  Company Number: US-KOWA-2014S1000140

PATIENT
  Age: 76 Year
  Sex: Female
  Weight: 58.42 kg

DRUGS (18)
  1. LIVALO [Suspect]
     Active Substance: PITAVASTATIN CALCIUM
     Indication: BLOOD CHOLESTEROL INCREASED
     Dosage: 0.5 DF, QD
     Route: 048
     Dates: start: 20130205, end: 201402
  2. CALCIUM [Concomitant]
     Active Substance: CALCIUM
  3. B12                                /00056202/ [Concomitant]
     Indication: INADEQUATE DIET
     Route: 060
  4. RESTASIS [Concomitant]
     Active Substance: CYCLOSPORINE
     Indication: DRY EYE
     Dates: start: 201402
  5. FENOFIBRATE. [Concomitant]
     Active Substance: FENOFIBRATE
     Dosage: 150 MG, QD
  6. PHENERGAN [Concomitant]
     Active Substance: PROMETHAZINE HYDROCHLORIDE
     Indication: GASTRIC PH DECREASED
  7. LEVOTHYROXINE [Concomitant]
     Active Substance: LEVOTHYROXINE
     Indication: HYPOTHYROIDISM
     Dosage: 75 N/A, QOD
     Dates: end: 20150315
  8. NEXIUM [Concomitant]
     Active Substance: ESOMEPRAZOLE MAGNESIUM
     Dosage: 40 MG, UNK
     Dates: start: 20140922
  9. RECLAST [Concomitant]
     Active Substance: ZOLEDRONIC ACID
     Indication: OSTEOPOROSIS
     Route: 042
  10. LEVOTHYROXINE [Concomitant]
     Active Substance: LEVOTHYROXINE
     Dosage: 88 N/A, QD
     Dates: start: 20150315
  11. XARELTO [Concomitant]
     Active Substance: RIVAROXABAN
     Indication: ATRIAL FIBRILLATION
     Dosage: 15 MG, QD
  12. METOPROLOL TARTRATE. [Concomitant]
     Active Substance: METOPROLOL TARTRATE
     Indication: ATRIAL FIBRILLATION
     Dosage: 0.5 DF, BID
  13. MAGNESIUM [Concomitant]
     Active Substance: MAGNESIUM
     Indication: HEART RATE
  14. FOLIC ACID. [Concomitant]
     Active Substance: FOLIC ACID
  15. LIVALO [Suspect]
     Active Substance: PITAVASTATIN CALCIUM
     Dosage: 1 MG, QD
     Route: 048
     Dates: start: 201402
  16. LEVOTHYROXINE [Concomitant]
     Active Substance: LEVOTHYROXINE
     Dosage: 88 N/A, QOD
     Dates: end: 20150315
  17. PHENERGAN [Concomitant]
     Active Substance: PROMETHAZINE HYDROCHLORIDE
     Indication: NAUSEA
     Dosage: 0.5 DF, UNK
  18. CARDIZEM [Concomitant]
     Active Substance: DILTIAZEM HYDROCHLORIDE
     Dates: start: 20140524, end: 201406

REACTIONS (6)
  - Weight decreased [Recovered/Resolved]
  - Wrong technique in drug usage process [Recovered/Resolved]
  - Chest pain [Recovering/Resolving]
  - Irritable bowel syndrome [Not Recovered/Not Resolved]
  - Contraindication to medical treatment [Unknown]
  - Orthostatic hypotension [None]

NARRATIVE: CASE EVENT DATE: 201402
